FAERS Safety Report 9082136 (Version 1)
Quarter: 2013Q1

REPORT INFORMATION
  Report Type: Report from Study
  Country: US (occurrence: US)
  Receive Date: 20130130
  Receipt Date: 20130130
  Transmission Date: 20140127
  Serious: No
  Sender: FDA-Public Use
  Company Number: US-ABBOTT-12P-163-0980797-00

PATIENT
  Age: 67 Year
  Sex: Female

DRUGS (8)
  1. HUMIRA [Suspect]
     Indication: RHEUMATOID ARTHRITIS
     Dates: start: 201111
  2. METHOTREXATE [Concomitant]
     Indication: RHEUMATOID ARTHRITIS
  3. CALCIUM [Concomitant]
     Indication: SUPPLEMENTATION THERAPY
  4. VITAMIN E [Concomitant]
     Indication: SUPPLEMENTATION THERAPY
  5. FOLIC ACID [Concomitant]
     Indication: SUPPLEMENTATION THERAPY
  6. POTASSIUM [Concomitant]
     Indication: SUPPLEMENTATION THERAPY
  7. PREDNISONE [Concomitant]
     Indication: PRODUCT USED FOR UNKNOWN INDICATION
  8. PREDNISONE [Concomitant]
     Dosage: ATTEMPTED WEAN
     Dates: start: 201205

REACTIONS (4)
  - Rheumatoid arthritis [Recovering/Resolving]
  - Seasonal allergy [Unknown]
  - Pharyngitis [Recovering/Resolving]
  - Upper respiratory tract infection [Recovering/Resolving]
